FAERS Safety Report 9425641 (Version 1)
Quarter: 2013Q3

REPORT INFORMATION
  Report Type: Spontaneous
  Country: GB (occurrence: GB)
  Receive Date: 20130729
  Receipt Date: 20130729
  Transmission Date: 20140515
  Serious: Yes (Other)
  Sender: FDA-Public Use
  Company Number: GB-MYLANLABS-2013S1015843

PATIENT
  Age: 55 Year
  Sex: Female
  Weight: 60.3 kg

DRUGS (2)
  1. SERTRALINE [Suspect]
     Indication: ANXIETY
     Route: 048
  2. SERTRALINE [Interacting]
     Indication: ANXIETY

REACTIONS (2)
  - Food interaction [Unknown]
  - Migraine with aura [Recovered/Resolved]
